FAERS Safety Report 6373017-8 (Version None)
Quarter: 2009Q3

REPORT INFORMATION
  Report Type: 
  Country: None (occurrence: None)
  Receive Date: 20090924
  Receipt Date: 20081217
  Transmission Date: 20100115
  Serious: Yes (Hospitalization)
  Sender: FDA-Public Use
  Company Number: US-ASTRAZENECA-2008UW28252

PATIENT
  Age: 39 Year
  Sex: Male
  Weight: 108.9 kg

DRUGS (8)
  1. SEROQUEL [Suspect]
     Indication: BIPOLAR I DISORDER
     Route: 048
  2. CELEBREX [Concomitant]
  3. RISPERDAL [Concomitant]
  4. THYROID TAB [Concomitant]
  5. HYDROCHLOROTHIAZIDE [Concomitant]
  6. INSULIN [Concomitant]
  7. NEXIUM [Concomitant]
  8. TRAZODONE [Concomitant]

REACTIONS (4)
  - BLOOD PRESSURE DECREASED [None]
  - CONVULSION [None]
  - PNEUMONIA [None]
  - PYREXIA [None]
